FAERS Safety Report 6310647-3 (Version None)
Quarter: 2009Q3

REPORT INFORMATION
  Report Type: 
  Country: None (occurrence: None)
  Receive Date: 20090814
  Receipt Date: 20090804
  Transmission Date: 20100115
  Serious: Yes (Death, Life-Threatening, Hospitalization)
  Sender: FDA-Public Use
  Company Number: FR-ABBOTT-09P-056-0588423-00

PATIENT
  Age: 17 Year
  Sex: Female

DRUGS (24)
  1. DEPAKENE [Suspect]
     Indication: STATUS EPILEPTICUS
     Route: 042
     Dates: start: 20081226
  2. INIPOMP [Suspect]
     Indication: PROPHYLAXIS AGAINST GASTROINTESTINAL ULCER
     Route: 042
     Dates: start: 20081201
  3. TAZOCILLINE [Suspect]
     Indication: ESCHERICHIA BACTERAEMIA
     Route: 042
     Dates: start: 20081225
  4. AMIKLIN [Suspect]
     Indication: ESCHERICHIA BACTERAEMIA
     Route: 042
     Dates: start: 20081225
  5. DILANTIN [Suspect]
     Indication: STATUS EPILEPTICUS
     Route: 042
     Dates: start: 20081209
  6. DIPRIVAN [Suspect]
     Indication: SEDATION
     Route: 042
     Dates: start: 20081218
  7. ENDOXAN [Suspect]
     Indication: SJOGREN'S SYNDROME
     Route: 042
     Dates: start: 20081221
  8. GARDENAL [Suspect]
     Indication: STATUS EPILEPTICUS
     Route: 042
     Dates: start: 20081201
  9. KEPPRA [Suspect]
     Indication: STATUS EPILEPTICUS
     Route: 042
     Dates: start: 20081206
  10. PENTOTHAL [Suspect]
     Indication: SEDATION
     Route: 042
     Dates: start: 20081208
  11. SUFENTA PRESERVATIVE FREE [Suspect]
     Indication: SEDATION
     Route: 042
     Dates: start: 20081129, end: 20081225
  12. URBANYL [Suspect]
     Indication: STATUS EPILEPTICUS
     Route: 042
     Dates: start: 20081215
  13. VANCOMYCIN [Suspect]
     Indication: PNEUMONIA STAPHYLOCOCCAL
     Route: 042
     Dates: start: 20081201
  14. FOSPHENYTOIN [Suspect]
     Indication: EPILEPSY
     Route: 042
     Dates: start: 20081209
  15. NEUPOGEN [Concomitant]
     Indication: DRUG USE FOR UNKNOWN INDICATION
     Route: 042
     Dates: start: 20081201
  16. PARACETAMOL [Concomitant]
     Indication: DRUG USE FOR UNKNOWN INDICATION
  17. NEOSTIGMINE [Concomitant]
     Indication: DRUG USE FOR UNKNOWN INDICATION
     Dates: start: 20081101
  18. NORADRENALINE [Concomitant]
     Indication: DRUG USE FOR UNKNOWN INDICATION
  19. DUPHALAC [Concomitant]
     Indication: DRUG USE FOR UNKNOWN INDICATION
  20. SOLU-MEDROL [Concomitant]
     Indication: DRUG USE FOR UNKNOWN INDICATION
     Dosage: 3 BOLUS OF 1 GRAM
  21. SOLU-MEDROL [Concomitant]
     Dosage: 3 BOLUS OF 1 GRAM
     Dates: start: 20081219, end: 20081221
  22. MIDAZOLAM HCL [Concomitant]
     Indication: DRUG USE FOR UNKNOWN INDICATION
     Route: 042
     Dates: start: 20081128, end: 20081209
  23. CORTICOTHERAPY [Concomitant]
     Indication: DRUG USE FOR UNKNOWN INDICATION
     Dosage: 1.5MG/KG
  24. POLYVENT IMMUNOGLOBULINS [Concomitant]
     Indication: DRUG USE FOR UNKNOWN INDICATION
     Dosage: 400MG/KD/D
     Dates: start: 20081219, end: 20081223

REACTIONS (7)
  - AGRANULOCYTOSIS [None]
  - CONDITION AGGRAVATED [None]
  - HISTIOCYTOSIS HAEMATOPHAGIC [None]
  - HYPERAMMONAEMIA [None]
  - MULTI-ORGAN FAILURE [None]
  - PANCYTOPENIA [None]
  - SEPTIC SHOCK [None]
